FAERS Safety Report 7388978-8 (Version None)
Quarter: 2011Q2

REPORT INFORMATION
  Report Type: 
  Country: None (occurrence: None)
  Receive Date: 20110401
  Receipt Date: 20110318
  Transmission Date: 20111010
  Serious: Yes (Other)
  Sender: FDA-Public Use
  Company Number: US-ASTRAZENECA-2009SE09795

PATIENT
  Age: 41 Year
  Sex: Male

DRUGS (4)
  1. SEROQUEL [Suspect]
     Indication: SLEEP DISORDER
     Dosage: 25 TO 200 MG
     Route: 048
     Dates: start: 19980101, end: 20081231
  2. SEROQUEL [Suspect]
     Indication: DEPRESSION
     Dosage: 25 TO 200 MG
     Route: 048
     Dates: start: 19980101, end: 20081231
  3. LEXAPRO [Concomitant]
     Dates: start: 20040101
  4. BUSPAR [Concomitant]
     Dates: start: 20000101

REACTIONS (4)
  - TYPE 2 DIABETES MELLITUS [None]
  - OBESITY [None]
  - METABOLIC DISORDER [None]
  - SLEEP APNOEA SYNDROME [None]
